APPROVED DRUG PRODUCT: DASETTA 1/35
Active Ingredient: ETHINYL ESTRADIOL; NORETHINDRONE
Strength: 0.035MG;1MG
Dosage Form/Route: TABLET;ORAL-28
Application: A090948 | Product #001 | TE Code: AB
Applicant: NOVAST LABORATORIES LTD
Approved: Dec 22, 2011 | RLD: No | RS: No | Type: RX